FAERS Safety Report 11589141 (Version 2)
Quarter: 2016Q1

REPORT INFORMATION
  Report Type: Spontaneous
  Country: US (occurrence: None)
  Receive Date: 20151002
  Receipt Date: 20160211
  Transmission Date: 20160525
  Serious: Yes (Other)
  Sender: FDA-Public Use
  Company Number: US-MDT-ADR-2015-01884

PATIENT
  Age: 24 Year
  Sex: Male

DRUGS (1)
  1. COMPOUNDED BACLOFEN INTRATHECAL (4000 MCG/ML) [Suspect]
     Active Substance: BACLOFEN
     Dosage: 2099.1 MCG/DAY

REACTIONS (1)
  - Muscle spasticity [None]
